FAERS Safety Report 16630734 (Version 1)
Quarter: 2019Q3

REPORT INFORMATION
  Report Type: Spontaneous
  Country: US (occurrence: US)
  Receive Date: 20190725
  Receipt Date: 20190725
  Transmission Date: 20191004
  Serious: No
  Sender: FDA-Public Use
  Company Number: US-JNJFOC-20190726285

PATIENT
  Age: 1 Year
  Sex: Male

DRUGS (1)
  1. MOTRIN INFANTS [Suspect]
     Active Substance: IBUPROFEN
     Indication: ACCIDENTAL EXPOSURE TO PRODUCT
     Dosage: WHOLE BOTTLE
     Route: 048

REACTIONS (2)
  - Accidental overdose [Unknown]
  - Feeling of relaxation [Unknown]

NARRATIVE: CASE EVENT DATE: 20190717
